FAERS Safety Report 9318081 (Version 2)
Quarter: 2013Q2

REPORT INFORMATION
  Report Type: Spontaneous
  Country: IT (occurrence: None)
  Receive Date: 20130524
  Receipt Date: 20130611
  Transmission Date: 20140414
  Serious: Yes (Other)
  Sender: FDA-Public Use
  Company Number: 2013AP005319

PATIENT
  Age: 84 Year
  Sex: Male

DRUGS (5)
  1. LEVOFLOXACIN [Suspect]
     Indication: RESPIRATORY TRACT INFECTION
     Dates: start: 20120703, end: 20120717
  2. EUTIROX (LEVOTHYROXINE SODIUM) (LEVOTHRYOXINE SODIUM) [Concomitant]
  3. ESOMEPRAZOLE SODIUM (ESOMEPRAZOLE SODIUM) [Concomitant]
  4. LASIX /00032601/  (FUROSEMIDE) [Concomitant]
  5. COUMADIN /00014802/  (WARFARIN SODIUM) [Concomitant]

REACTIONS (6)
  - Coprolalia [None]
  - Aggression [None]
  - Depression [None]
  - Insomnia [None]
  - Restlessness [None]
  - Suicide attempt [None]
